FAERS Safety Report 6528766-5 (Version None)
Quarter: 2010Q1

REPORT INFORMATION
  Report Type: 
  Country: None (occurrence: None)
  Receive Date: 20100106
  Receipt Date: 20091230
  Transmission Date: 20100710
  Serious: Yes (Other)
  Sender: FDA-Public Use
  Company Number: CHPA2009US24283

PATIENT
  Age: 44 Year
  Sex: Male
  Weight: 87.075 kg

DRUGS (6)
  1. THERAFLU FLU AND CHEST CONGESTION WITHOUT PSE (NCH) [Suspect]
     Indication: NASOPHARYNGITIS
     Dosage: 4 DIVIDED DOSAGE IN A DAY
     Route: 048
     Dates: start: 20091230, end: 20100102
  2. THERAFLU FLU AND CHEST CONGESTION WITHOUT PSE (NCH) [Suspect]
     Indication: RESPIRATORY TRACT IRRITATION
  3. THERAFLU SINUS + COLD (NCH) [Suspect]
     Indication: NASOPHARYNGITIS
     Dosage: 1 DF, QD
     Route: 048
     Dates: start: 20091229, end: 20091229
  4. THERAFLU SINUS + COLD (NCH) [Suspect]
     Indication: RESPIRATORY TRACT IRRITATION
     Dosage: 2 DF, QD
     Route: 048
     Dates: start: 20091230, end: 20091230
  5. INSULIN [Concomitant]
  6. DRUG THERAPY NOS [Concomitant]

REACTIONS (2)
  - BLOOD GLUCOSE INCREASED [None]
  - DIZZINESS [None]
